FAERS Safety Report 16217592 (Version 1)
Quarter: 2019Q2

REPORT INFORMATION
  Report Type: Spontaneous
  Country: US (occurrence: US)
  Receive Date: 20190419
  Receipt Date: 20190419
  Transmission Date: 20190711
  Serious: Yes (Other)
  Sender: FDA-Public Use
  Company Number: US-HIKMA PHARMACEUTICALS USA INC.-US-H14001-19-00095

PATIENT
  Sex: Female

DRUGS (3)
  1. PROGESTERONE. [Suspect]
     Active Substance: PROGESTERONE
     Route: 030
     Dates: start: 20181227
  2. PROGESTERONE. [Suspect]
     Active Substance: PROGESTERONE
     Route: 030
  3. PROGESTERONE. [Suspect]
     Active Substance: PROGESTERONE
     Indication: HORMONE THERAPY
     Route: 030
     Dates: start: 20181222

REACTIONS (10)
  - Infection [Unknown]
  - Myalgia [Not Recovered/Not Resolved]
  - Maternal exposure during pregnancy [Recovered/Resolved]
  - Tenderness [Not Recovered/Not Resolved]
  - Foreign body reaction [Unknown]
  - Off label use [Recovered/Resolved]
  - Product use issue [Unknown]
  - Injection site pruritus [Not Recovered/Not Resolved]
  - Abortion spontaneous [Recovered/Resolved]
  - Injection site inflammation [Unknown]
